FAERS Safety Report 8963951 (Version 2)
Quarter: 2012Q4

REPORT INFORMATION
  Report Type: 
  Country: FI (occurrence: FI)
  Receive Date: 20121214
  Receipt Date: 20121227
  Transmission Date: 20130627
  Serious: Yes (Hospitalization, Other)
  Sender: FDA-Public Use
  Company Number: FI-AMGEN-FINSP2012079058

PATIENT
  Age: 59 Year
  Sex: Male
  Weight: 46 kg

DRUGS (9)
  1. PROLIA [Suspect]
     Indication: OSTEOPOROSIS
     Dosage: 60 mg, one time dose
     Route: 058
     Dates: start: 20120927
  2. CALCIUM [Concomitant]
  3. VITAMIN D                          /00318501/ [Concomitant]
  4. TAMSULOSIN [Concomitant]
     Indication: BENIGN PROSTATIC HYPERPLASIA
     Dosage: 0.4 mg, qd
     Route: 048
  5. SOMAC [Concomitant]
  6. NEULACTIL [Concomitant]
     Indication: ANXIETY
     Dosage: 10 mg, bid
     Route: 048
  7. QUETIAPINE [Concomitant]
     Indication: ANXIETY
     Dosage: 300 mg, bid
     Route: 048
  8. LORAZEPAM [Concomitant]
     Indication: ANXIETY
     Dosage: 1 mg, bid
     Route: 048
  9. NEUROTOL                           /00052501/ [Concomitant]
     Indication: EPILEPSY
     Dosage: 200 mg, bid
     Route: 048

REACTIONS (13)
  - Skin reaction [Recovered/Resolved]
  - Lip swelling [Recovered/Resolved]
  - Pharyngeal oedema [Recovered/Resolved]
  - Oedema mouth [Recovered/Resolved]
  - Dyspnoea [Recovered/Resolved]
  - Pruritus [Recovered/Resolved]
  - Skin exfoliation [Not Recovered/Not Resolved]
  - Urticaria [Recovered/Resolved]
  - Rash [Recovered/Resolved]
  - Eczema [Recovered/Resolved]
  - White blood cell count increased [Unknown]
  - C-reactive protein increased [Unknown]
  - Dermatitis [Recovered/Resolved]
